FAERS Safety Report 12714724 (Version 4)
Quarter: 2016Q4

REPORT INFORMATION
  Report Type: Spontaneous
  Country: US (occurrence: US)
  Receive Date: 20160905
  Receipt Date: 20161006
  Transmission Date: 20170207
  Serious: Yes (Other)
  Sender: FDA-Public Use
  Company Number: US-JNJFOC-20160902111

PATIENT
  Age: 81 Year
  Sex: Male
  Weight: 83.9 kg

DRUGS (6)
  1. ADEMPAS [Suspect]
     Active Substance: RIOCIGUAT
     Indication: PULMONARY HYPERTENSION
     Route: 048
  2. XARELTO [Suspect]
     Active Substance: RIVAROXABAN
     Indication: PRODUCT USED FOR UNKNOWN INDICATION
     Route: 048
  3. ADEMPAS [Suspect]
     Active Substance: RIOCIGUAT
     Indication: PULMONARY HYPERTENSION
     Route: 048
     Dates: start: 20160628
  4. ADEMPAS [Suspect]
     Active Substance: RIOCIGUAT
     Indication: PULMONARY HYPERTENSION
     Route: 048
  5. ADEMPAS [Suspect]
     Active Substance: RIOCIGUAT
     Indication: PULMONARY HYPERTENSION
     Route: 048
  6. CARTIA XT [Concomitant]
     Active Substance: DILTIAZEM HYDROCHLORIDE
     Route: 065

REACTIONS (15)
  - Hypotension [Unknown]
  - Scab [Unknown]
  - Lung neoplasm malignant [Unknown]
  - Constipation [Unknown]
  - Peripheral swelling [Unknown]
  - Dyspnoea [Unknown]
  - Pruritus [Unknown]
  - Rash generalised [Unknown]
  - Joint swelling [Unknown]
  - Pain [Unknown]
  - Productive cough [Unknown]
  - Wound haemorrhage [Unknown]
  - Gait disturbance [Unknown]
  - Oedema peripheral [Unknown]
  - Rash pruritic [Unknown]

NARRATIVE: CASE EVENT DATE: 20160810
